FAERS Safety Report 16607956 (Version 1)
Quarter: 2019Q3

REPORT INFORMATION
  Report Type: Spontaneous
  Country: JP (occurrence: JP)
  Receive Date: 20190722
  Receipt Date: 20190722
  Transmission Date: 20191004
  Serious: Yes (Other)
  Sender: FDA-Public Use
  Company Number: JP-TEVA-2019-JP-1058362

PATIENT
  Age: 78 Year
  Sex: Female
  Weight: 43 kg

DRUGS (8)
  1. NEUPRO [Concomitant]
     Active Substance: ROTIGOTINE
     Route: 065
  2. NOURIAST [Concomitant]
     Active Substance: ISTRADEFYLLINE
     Route: 065
  3. AZILECT [Suspect]
     Active Substance: RASAGILINE MESYLATE
     Dosage: .5  DAILY;
     Route: 048
     Dates: start: 20190404
  4. ENTACAPONE. [Concomitant]
     Active Substance: ENTACAPONE
     Route: 065
  5. TRERIEF [Concomitant]
     Active Substance: ZONISAMIDE
     Route: 065
  6. AZILECT [Suspect]
     Active Substance: RASAGILINE MESYLATE
     Indication: PARKINSON^S DISEASE
     Dosage: .5 MILLIGRAM DAILY;
     Route: 048
     Dates: start: 20181122, end: 20181127
  7. CARBIDOPA MONOHYDRATE W/LEVODOPA [Concomitant]
  8. STALEVO [Concomitant]
     Active Substance: CARBIDOPA\ENTACAPONE\LEVODOPA
     Route: 065

REACTIONS (2)
  - Akinesia [Recovering/Resolving]
  - Condition aggravated [Recovering/Resolving]

NARRATIVE: CASE EVENT DATE: 201811
